FAERS Safety Report 8084175-1 (Version None)
Quarter: 2012Q1

REPORT INFORMATION
  Report Type: 
  Country: None (occurrence: None)
  Receive Date: 20120128
  Receipt Date: 20110119
  Transmission Date: 20120608
  Serious: No
  Sender: FDA-Public Use
  Company Number: US-ABBOTT-11P-163-0699325-00

PATIENT
  Sex: Male
  Weight: 119.86 kg

DRUGS (1)
  1. HUMIRA [Suspect]
     Indication: PSORIASIS
     Route: 058
     Dates: start: 20100801, end: 20110111

REACTIONS (7)
  - PRURITUS GENERALISED [None]
  - PSORIASIS [None]
  - SKIN IRRITATION [None]
  - PURPURA [None]
  - EYE DISCHARGE [None]
  - RASH [None]
  - PRURITUS [None]
